FAERS Safety Report 8845601 (Version 1)
Quarter: 2012Q4

REPORT INFORMATION
  Report Type: 
  Country: US (occurrence: US)
  Receive Date: 20121017
  Receipt Date: 20121017
  Transmission Date: 20130627
  Serious: Yes (Death, Other)
  Sender: FDA-Public Use
  Company Number: US-ROCHE-1146246

PATIENT
  Age: 33 Year
  Sex: Male
  Weight: 42.45 kg

DRUGS (3)
  1. NUTROPIN [Suspect]
     Indication: ENDOCRINE DISORDER
     Route: 058
     Dates: start: 19991013
  2. ZOLOFT [Concomitant]
  3. SERTRALINE [Concomitant]

REACTIONS (4)
  - Completed suicide [Fatal]
  - Depression [Unknown]
  - Blood cholesterol increased [Unknown]
  - Body fat disorder [Unknown]
